FAERS Safety Report 6030010-2 (Version None)
Quarter: 2008Q4

REPORT INFORMATION
  Report Type: 
  Country: None (occurrence: None)
  Receive Date: 20081222
  Receipt Date: 20080905
  Transmission Date: 20090506
  Serious: Yes (Other)
  Sender: FDA-Public Use
  Company Number: US-WYE-H05894908

PATIENT
  Age: 48 Year
  Sex: Female
  Weight: 118.04 kg

DRUGS (4)
  1. PRISTIQ [Suspect]
     Indication: MULTIPLE SCLEROSIS
     Dosage: 50 MG 1X PER 1 DAY, ORAL
     Route: 048
     Dates: start: 20080819, end: 20080831
  2. AVONEX [Concomitant]
  3. ZANAFLEX [Concomitant]
  4. AMOXICILLIN [Concomitant]

REACTIONS (5)
  - AGITATION [None]
  - ANXIETY [None]
  - BLOOD PRESSURE INCREASED [None]
  - DRUG WITHDRAWAL SYNDROME [None]
  - HEART RATE INCREASED [None]
